FAERS Safety Report 12460134 (Version 3)
Quarter: 2016Q3

REPORT INFORMATION
  Report Type: Spontaneous
  Country: US (occurrence: US)
  Receive Date: 20160613
  Receipt Date: 20160803
  Transmission Date: 20161109
  Serious: Yes (Hospitalization, Other)
  Sender: FDA-Public Use
  Company Number: US-PFIZER INC-2016292346

PATIENT
  Age: 59 Year
  Sex: Female
  Weight: 66.68 kg

DRUGS (2)
  1. EFFEXOR [Interacting]
     Active Substance: VENLAFAXINE HYDROCHLORIDE
     Indication: DEPRESSION
     Dosage: 150 MG, UNK
     Dates: end: 2006
  2. EFFEXOR XR [Suspect]
     Active Substance: VENLAFAXINE HYDROCHLORIDE
     Indication: DEPRESSION
     Dosage: 150 MG, UNK
     Dates: end: 2006

REACTIONS (5)
  - Suicidal ideation [Recovered/Resolved]
  - Suicide attempt [Unknown]
  - Drug ineffective [Recovered/Resolved]
  - Drug interaction [Unknown]
  - Female sexual dysfunction [Unknown]

NARRATIVE: CASE EVENT DATE: 2006
